FAERS Safety Report 6213799-9 (Version None)
Quarter: 2009Q2

REPORT INFORMATION
  Report Type: 
  Country: None (occurrence: None)
  Receive Date: 20090602
  Receipt Date: 20090522
  Transmission Date: 20091009
  Serious: Yes (Other)
  Sender: FDA-Public Use
  Company Number: 09US991598

PATIENT
  Age: 6 Year
  Sex: Female
  Weight: 28.1 kg

DRUGS (2)
  1. IBUPROFEN [Suspect]
     Indication: PYREXIA
     Dosage: 200 MG, SINGLE,ORAL; 200 MG, SINGLE, ORAL
     Route: 048
     Dates: start: 20090510, end: 20090510
  2. IBUPROFEN [Suspect]
     Indication: PYREXIA
     Dosage: 200 MG, SINGLE,ORAL; 200 MG, SINGLE, ORAL
     Route: 048
     Dates: start: 20090520, end: 20090520

REACTIONS (1)
  - DRUG HYPERSENSITIVITY [None]
